FAERS Safety Report 15880027 (Version 1)
Quarter: 2019Q1

REPORT INFORMATION
  Report Type: Spontaneous
  Country: US (occurrence: US)
  Receive Date: 20190128
  Receipt Date: 20190128
  Transmission Date: 20190417
  Serious: Yes (Death)
  Sender: FDA-Public Use
  Company Number: US-PERRIGO-19US001133

PATIENT
  Age: 76 Year
  Sex: Male

DRUGS (12)
  1. ACETAMINOPHEN. [Suspect]
     Active Substance: ACETAMINOPHEN
     Indication: COMPLETED SUICIDE
     Dosage: UNK
     Route: 048
  2. NAPROXEN SODIUM. [Suspect]
     Active Substance: NAPROXEN SODIUM
     Indication: COMPLETED SUICIDE
     Dosage: UNK
     Route: 048
  3. OMEPRAZOLE. [Suspect]
     Active Substance: OMEPRAZOLE
     Indication: COMPLETED SUICIDE
     Dosage: UNK
     Route: 048
  4. AMLODIPINE [Suspect]
     Active Substance: AMLODIPINE BESYLATE
     Indication: COMPLETED SUICIDE
     Dosage: UNK
     Route: 048
  5. OXYBUTYNIN. [Suspect]
     Active Substance: OXYBUTYNIN CHLORIDE
     Indication: COMPLETED SUICIDE
     Dosage: UNK
     Route: 048
  6. DULOXETINE. [Suspect]
     Active Substance: DULOXETINE
     Indication: COMPLETED SUICIDE
     Dosage: UNK
     Route: 048
  7. FOLIC ACID. [Suspect]
     Active Substance: FOLIC ACID
     Indication: COMPLETED SUICIDE
     Dosage: UNK
     Route: 048
  8. CYCLOBENZAPRINE. [Suspect]
     Active Substance: CYCLOBENZAPRINE
     Indication: COMPLETED SUICIDE
     Dosage: UNK
     Route: 048
  9. COCAINE [Suspect]
     Active Substance: COCAINE
     Indication: COMPLETED SUICIDE
     Dosage: UNK
     Route: 048
  10. ATORVASTATIN [Suspect]
     Active Substance: ATORVASTATIN
     Indication: COMPLETED SUICIDE
     Dosage: UNK
     Route: 048
  11. CYANOCOBALAMIN. [Suspect]
     Active Substance: CYANOCOBALAMIN
     Indication: COMPLETED SUICIDE
     Dosage: UNK
     Route: 048
  12. GABAPENTIN. [Suspect]
     Active Substance: GABAPENTIN
     Indication: COMPLETED SUICIDE
     Dosage: UNK
     Route: 048

REACTIONS (1)
  - Death [Fatal]
